FAERS Safety Report 23375642 (Version 3)
Quarter: 2024Q2

REPORT INFORMATION
  Report Type: Spontaneous
  Country: NL (occurrence: NL)
  Receive Date: 20240107
  Receipt Date: 20240525
  Transmission Date: 20240716
  Serious: Yes (Life-Threatening, Hospitalization)
  Sender: FDA-Public Use
  Company Number: NL-TEVA-VS-3135305

PATIENT
  Age: 61 Year
  Sex: Female

DRUGS (23)
  1. AJOVY [Suspect]
     Active Substance: FREMANEZUMAB-VFRM
     Indication: Migraine
     Dosage: 225MG/1,5 ML
     Route: 065
     Dates: start: 20230926, end: 20231126
  2. FENTANYL [Concomitant]
     Active Substance: FENTANYL\FENTANYL CITRATE
  3. NALOXEGOL [Concomitant]
     Active Substance: NALOXEGOL
  4. ZOLMITRIPTAN [Concomitant]
     Active Substance: ZOLMITRIPTAN
     Indication: Migraine
     Dosage: 1 TABLET,EPEAT IF NEEDED AFTER 2 HOURS, NOT MORE THEN 2 TABLETS
  5. PROMETHAZINE [Concomitant]
     Active Substance: PROMETHAZINE HYDROCHLORIDE
     Dosage: 1 ONCE DAILY
     Route: 048
  6. Beclometason/formoterol/glycopyrronium [Concomitant]
     Dosage: INHALE IN THE LUNGS TWICE A DAY
  7. NORTRIPTYLINE [Concomitant]
     Active Substance: NORTRIPTYLINE
     Route: 048
  8. NITROGLYCERIN [Concomitant]
     Active Substance: NITROGLYCERIN
     Dosage: 1 SPRAY, SUBLINGUAL, WHEN NEEDED
     Route: 060
  9. AZITHROMYCIN [Concomitant]
     Active Substance: AZITHROMYCIN
     Route: 048
  10. ROFLUMILAST [Concomitant]
     Active Substance: ROFLUMILAST
     Route: 048
  11. ALBUTEROL\IPRATROPIUM [Concomitant]
     Active Substance: ALBUTEROL\IPRATROPIUM
     Dosage: 2,5 ML NEBULIZE, 4 TIMES DAILY (AT 08:00/12:00/17:00/22:00)
  12. IBUPROFEN [Concomitant]
     Active Substance: IBUPROFEN
     Dosage: WHEN NEEDED
  13. ACETAMINOPHEN [Concomitant]
     Active Substance: ACETAMINOPHEN
     Dosage: WHEN NEEDED, 4 TIMES DAILY
     Route: 048
  14. FLUTICASONE [Concomitant]
     Active Substance: FLUTICASONE
     Dosage: 2 MG, NEBULIZE, TWICE DAILY
  15. MORPHINE [Concomitant]
     Active Substance: MORPHINE
     Route: 048
  16. FENOTEROL\IPRATROPIUM [Concomitant]
     Active Substance: FENOTEROL\IPRATROPIUM
     Dosage: INHALE TWICE, WHEN NEEDED
  17. METOCLOPRAMIDE [Concomitant]
     Active Substance: METOCLOPRAMIDE
     Dosage: WHEN NEEDED ONCE DAILY
     Route: 048
  18. BISACODYL [Concomitant]
     Active Substance: BISACODYL
     Dosage: 4 TIMES DAILY (AT 08:00/12:00/17:00/22:00)
     Route: 048
  19. ESOMEPRAZOLE [Concomitant]
     Active Substance: ESOMEPRAZOLE
     Route: 048
  20. BUDESONIDE [Concomitant]
     Active Substance: BUDESONIDE
     Dosage: SPRAY TWICE, IN BOTH NOSTRILS, ONCE DAILY
  21. MONTELUKAST [Concomitant]
     Active Substance: MONTELUKAST SODIUM
     Dosage: BEFORE 22:00
     Route: 048
  22. DESLORATADINE [Concomitant]
     Active Substance: DESLORATADINE
     Route: 048
  23. PRAVASTATIN [Concomitant]
     Active Substance: PRAVASTATIN
     Dosage: BEFORE 22:00
     Route: 048

REACTIONS (4)
  - Myocardial infarction [Recovered/Resolved with Sequelae]
  - Coronary artery stenosis [Recovered/Resolved with Sequelae]
  - Fatigue [Unknown]
  - Dyspnoea [Unknown]

NARRATIVE: CASE EVENT DATE: 20230101
